FAERS Safety Report 4543715-7 (Version None)
Quarter: 2004Q4

REPORT INFORMATION
  Report Type: 
  Country: None (occurrence: None)
  Receive Date: 20041229
  Receipt Date: 20041229
  Transmission Date: 20050328
  Serious: Yes (Other)
  Sender: FDA-Public Use
  Company Number: None

PATIENT
  Age: 9 Year
  Sex: Female
  Weight: 20.8655 kg

DRUGS (5)
  1. PROTONIX [Suspect]
     Indication: BONE MARROW TRANSPLANT
     Dosage: 20 MG IV QD
     Route: 042
     Dates: start: 20041214, end: 20041223
  2. PROTONIX [Suspect]
     Indication: GRAFT VERSUS HOST DISEASE
     Dosage: 20 MG IV QD
     Route: 042
     Dates: start: 20041214, end: 20041223
  3. PROTONIX [Suspect]
     Indication: NAUSEA
     Dosage: 20 MG IV QD
     Route: 042
     Dates: start: 20041214, end: 20041223
  4. PROTONIX [Suspect]
     Indication: VOMITING
     Dosage: 20 MG IV QD
     Route: 042
     Dates: start: 20041214, end: 20041223
  5. TOTAL PARENTATAL NUTRITION [Concomitant]
     Indication: APLASTIC ANAEMIA

REACTIONS (1)
  - URTICARIA [None]
